FAERS Safety Report 16194719 (Version 7)
Quarter: 2019Q4

REPORT INFORMATION
  Report Type: Spontaneous
  Country: US (occurrence: US)
  Receive Date: 20190414
  Receipt Date: 20191030
  Transmission Date: 20200122
  Serious: Yes (Hospitalization, Other)
  Sender: FDA-Public Use
  Company Number: US-LEXICON PHARMACEUTICALS, INC-19-1606-00420

PATIENT
  Age: 41 Year
  Sex: Male

DRUGS (3)
  1. LANREOTIDE [Concomitant]
     Active Substance: LANREOTIDE
  2. TELOTRISTAT ETHYL [Suspect]
     Active Substance: TELOTRISTAT ETHYL
     Route: 048
     Dates: start: 20170525
  3. TELOTRISTAT ETHYL [Suspect]
     Active Substance: TELOTRISTAT ETHYL
     Indication: CARCINOID SYNDROME
     Route: 048
     Dates: start: 20170509, end: 201705

REACTIONS (9)
  - T-cell lymphoma [Not Recovered/Not Resolved]
  - Device issue [Unknown]
  - Hyperhidrosis [Unknown]
  - Hospitalisation [Unknown]
  - Pulmonary mass [Unknown]
  - Malaise [Not Recovered/Not Resolved]
  - Disease progression [Unknown]
  - Product dose omission [Not Recovered/Not Resolved]
  - Rash [Unknown]

NARRATIVE: CASE EVENT DATE: 20190712
